FAERS Safety Report 8082009-2 (Version None)
Quarter: 2012Q1

REPORT INFORMATION
  Report Type: 
  Country: None (occurrence: None)
  Receive Date: 20120130
  Receipt Date: 20120123
  Transmission Date: 20120608
  Serious: Yes (Other)
  Sender: FDA-Public Use
  Company Number: PHHY2012GB005711

PATIENT
  Age: 86 Year
  Sex: Female

DRUGS (6)
  1. HYPROMELLOSE [Concomitant]
     Route: 048
  2. ACETAMINOPHEN AND CODEINE PHOSPHATE [Concomitant]
     Route: 048
  3. BECLOMETHASONE DIPROPIONATE [Concomitant]
     Dosage: 2 DF, QD
     Route: 048
  4. WARFARIN SODIUM [Interacting]
     Dosage: 5 MG, UNK
     Route: 048
  5. AMOXICILLIN [Suspect]
     Indication: TOOTH ABSCESS
     Dosage: 250 MG, UNK
     Route: 048
     Dates: start: 20110715
  6. METFFORMIN HYDROCHLORIDE [Concomitant]
     Dosage: 500 MG, BID
     Route: 048

REACTIONS (2)
  - DRUG LEVEL CHANGED [None]
  - DRUG INTERACTION [None]
